FAERS Safety Report 8102575-8 (Version None)
Quarter: 2012Q1

REPORT INFORMATION
  Report Type: 
  Country: None (occurrence: None)
  Receive Date: 20120126
  Receipt Date: 20120114
  Transmission Date: 20120608
  Serious: Yes (Hospitalization)
  Sender: FDA-Public Use
  Company Number: 2012AP000111

PATIENT
  Age: 70 Year
  Sex: Male

DRUGS (4)
  1. SPIRONOLACTONE [Suspect]
     Indication: PRODUCT USED FOR UNKNOWN INDICATION
  2. VALSARTAN [Suspect]
     Indication: PRODUCT USED FOR UNKNOWN INDICATION
  3. INSULIN [Suspect]
     Indication: PRODUCT USED FOR UNKNOWN INDICATION
  4. CARVEDILOL [Suspect]
     Indication: PRODUCT USED FOR UNKNOWN INDICATION

REACTIONS (7)
  - NODAL RHYTHM [None]
  - BLOOD GLUCOSE INCREASED [None]
  - RESPIRATORY DISTRESS [None]
  - ATRIOVENTRICULAR BLOCK COMPLETE [None]
  - SINUS ARREST [None]
  - HAEMOGLOBIN DECREASED [None]
  - RENAL FAILURE [None]
